FAERS Safety Report 6470718-8 (Version None)
Quarter: 2009Q4

REPORT INFORMATION
  Report Type: 
  Country: None (occurrence: None)
  Receive Date: 20091203
  Receipt Date: 20091126
  Transmission Date: 20100525
  Serious: Yes (Death)
  Sender: FDA-Public Use
  Company Number: A0832888A

PATIENT
  Sex: Female
  Weight: 60 kg

DRUGS (5)
  1. SERETIDE [Suspect]
     Dosage: 1PUFF TWICE PER DAY
     Route: 055
     Dates: start: 20020101, end: 20091113
  2. BEROTEC [Concomitant]
  3. DUOVENT [Concomitant]
  4. IPRATROPIUM [Concomitant]
  5. AEROLIN [Concomitant]

REACTIONS (1)
  - RESPIRATORY FAILURE [None]
